FAERS Safety Report 7146357-2 (Version None)
Quarter: 2010Q4

REPORT INFORMATION
  Report Type: 
  Country: None (occurrence: None)
  Receive Date: 20101208
  Receipt Date: 20100920
  Transmission Date: 20110411
  Serious: No
  Sender: FDA-Public Use
  Company Number: US-BRISTOL-MYERS SQUIBB COMPANY-13333331

PATIENT
  Age: 74 Year
  Sex: Female
  Weight: 70 kg

DRUGS (13)
  1. PRAVACHOL [Suspect]
     Indication: BLOOD CHOLESTEROL INCREASED
     Dosage: TWO MONTHS PRIOR TO THE REPORT THE PT. TOOK PRAVACHOL 80MG DAILY FOR THREE DAYS.
     Dates: start: 20050101
  2. SYNTHROID [Concomitant]
  3. DYAZIDE [Concomitant]
  4. ZETIA [Concomitant]
  5. FOSAMAX [Concomitant]
  6. VITAMIN E [Concomitant]
  7. SELENIUM [Concomitant]
  8. CALCIUM [Concomitant]
  9. GLUCOSAMINE [Concomitant]
  10. THYROID [Concomitant]
  11. ATIVAN [Concomitant]
  12. VITAMIN D [Concomitant]
  13. ZOCOR [Concomitant]

REACTIONS (10)
  - ASTHMA [None]
  - BLOOD CHOLESTEROL INCREASED [None]
  - COUGH [None]
  - DYSPNOEA [None]
  - FALL [None]
  - INSOMNIA [None]
  - PAIN IN EXTREMITY [None]
  - SINUSITIS [None]
  - SPIDER VEIN [None]
  - WRIST FRACTURE [None]
